FAERS Safety Report 7302958-X (Version None)
Quarter: 2011Q1

REPORT INFORMATION
  Report Type: 
  Country: None (occurrence: None)
  Receive Date: 20110220
  Receipt Date: 20110125
  Transmission Date: 20110831
  Serious: Yes (Other)
  Sender: FDA-Public Use
  Company Number: US-BAYER-2011-012643

PATIENT
  Sex: Male
  Weight: 70 kg

DRUGS (5)
  1. ALEVE (CAPLET) [Suspect]
     Indication: ANALGESIC THERAPY
     Dosage: 440 MG, QD, BOTTLE COUNT 200S
     Route: 048
     Dates: start: 20110122
  2. CLONIDINE [Concomitant]
     Indication: HYPERTENSION
  3. LISINOPRIL [Concomitant]
     Indication: HYPERTENSION
  4. CARVEDILOL [Concomitant]
     Indication: HYPERTENSION
  5. AMLODIPINE [Concomitant]
     Indication: HYPERTENSION

REACTIONS (2)
  - OEDEMA PERIPHERAL [None]
  - HYPERTENSION [None]
